FAERS Safety Report 25428843 (Version 3)
Quarter: 2025Q3

REPORT INFORMATION
  Report Type: Spontaneous
  Country: JP (occurrence: JP)
  Receive Date: 20250612
  Receipt Date: 20250904
  Transmission Date: 20251020
  Serious: Yes (Life-Threatening, Hospitalization, Other)
  Sender: MERCK SHARP & DOHME LLC
  Company Number: JP-009507513-2294169

PATIENT
  Age: 75 Year
  Weight: 51.8 kg

DRUGS (10)
  1. SUGAMMADEX SODIUM [Suspect]
     Active Substance: SUGAMMADEX SODIUM
     Indication: Neuromuscular blockade reversal
     Dosage: INTRAVENOUS SOLUTION, STRENGTH: 200 MG; DAILY DOSE: 200MG
     Route: 042
     Dates: start: 20250603
  2. ROCURONIUM BROMIDE [Suspect]
     Active Substance: ROCURONIUM BROMIDE
     Indication: Neuromuscular blocking therapy
     Dosage: INTRAVENOUS SOLUTION, STRENGTH: 50MG/5.0ML; 100 MG, 100 MG/ DAY
     Route: 042
     Dates: start: 20250603
  3. REMIFENTANIL HYDROCHLORIDE [Concomitant]
     Active Substance: REMIFENTANIL HYDROCHLORIDE
     Indication: Analgesic therapy
     Route: 041
     Dates: start: 20250603, end: 20250603
  4. EPHEDRINE HYDROCHLORIDE [Concomitant]
     Active Substance: EPHEDRINE HYDROCHLORIDE
     Indication: Blood pressure increased
     Route: 042
     Dates: start: 20250603, end: 20250603
  5. CEFAZOLIN SODIUM [Concomitant]
     Active Substance: CEFAZOLIN SODIUM
     Indication: Infection prophylaxis
     Dosage: 1 G, 1 G/ DAY
     Route: 041
     Dates: start: 20250603, end: 20250603
  6. ACETAMINOPHEN [Concomitant]
     Active Substance: ACETAMINOPHEN
     Indication: Analgesic therapy
     Dosage: 1000 MG, 1000 MG/ DAY
     Route: 041
     Dates: start: 20250603, end: 20250603
  7. FLURBIPROFEN AXETIL [Concomitant]
     Active Substance: FLURBIPROFEN AXETIL
     Indication: Analgesic therapy
     Dosage: 50 MG, 50 MG/ DAY
     Route: 042
     Dates: start: 20250603
  8. XYLOCAINE WITH EPINEPHRINE [Concomitant]
     Active Substance: EPINEPHRINE BITARTRATE\LIDOCAINE HYDROCHLORIDE
     Indication: Analgesic therapy
     Route: 061
     Dates: start: 20250603
  9. SUPRANE [Concomitant]
     Active Substance: DESFLURANE
     Indication: Induction of anaesthesia
     Route: 055
     Dates: start: 20250603, end: 20250603
  10. PROPOFOL [Concomitant]
     Active Substance: PROPOFOL
     Indication: Induction of anaesthesia
     Dosage: 7 ML, 7 ML/ DAY
     Route: 042
     Dates: start: 20250603

REACTIONS (1)
  - Anaphylactic reaction [Recovered/Resolved]

NARRATIVE: CASE EVENT DATE: 20250603
